FAERS Safety Report 5077747-X (Version None)
Quarter: 2006Q3

REPORT INFORMATION
  Report Type: 
  Country: None (occurrence: None)
  Receive Date: 20060810
  Receipt Date: 20060706
  Transmission Date: 20061208
  Serious: Yes (Hospitalization)
  Sender: FDA-Public Use
  Company Number: AU-ABBOTT-06P-008-0337503-00

PATIENT
  Sex: Male
  Weight: 63 kg

DRUGS (7)
  1. RITONAVIR SOFT GELATIN CAPSULES [Suspect]
     Indication: HIV INFECTION
     Route: 048
     Dates: start: 20060616
  2. TMC114 (DARUNAVIR) [Concomitant]
     Indication: HIV INFECTION
     Route: 048
     Dates: start: 20060616
  3. ABACAVIR [Concomitant]
     Indication: HIV INFECTION
     Route: 048
     Dates: end: 20060616
  4. LAMIVUDINE [Concomitant]
     Indication: HIV INFECTION
     Route: 048
     Dates: end: 20060616
  5. NEVIRAPINE [Concomitant]
     Indication: HIV INFECTION
     Route: 048
     Dates: end: 20060616
  6. TRUVADA [Concomitant]
     Indication: HIV INFECTION
     Dosage: 1 DOSE
     Route: 048
     Dates: start: 20060616
  7. BACTRIM [Concomitant]
     Indication: ANTIBIOTIC PROPHYLAXIS
     Route: 048
     Dates: start: 19970101

REACTIONS (8)
  - ANOREXIA [None]
  - BALANCE DISORDER [None]
  - CRANIAL NERVE PALSIES MULTIPLE [None]
  - DIPLOPIA [None]
  - DIZZINESS POSTURAL [None]
  - ERUCTATION [None]
  - FATIGUE [None]
  - VISUAL DISTURBANCE [None]
